FAERS Safety Report 5891247-6 (Version None)
Quarter: 2008Q3

REPORT INFORMATION
  Report Type: 
  Country: None (occurrence: None)
  Receive Date: 20080922
  Receipt Date: 20080903
  Transmission Date: 20090109
  Serious: No
  Sender: FDA-Public Use
  Company Number: US-BAYER-200832585NA

PATIENT
  Age: 40 Year
  Sex: Female

DRUGS (2)
  1. YAZ [Suspect]
     Indication: ACNE
     Route: 048
     Dates: start: 20080701
  2. ANTIBIOTIC NOS [Concomitant]
     Indication: ACNE

REACTIONS (4)
  - DIZZINESS [None]
  - MOTION SICKNESS [None]
  - NAUSEA [None]
  - UNEVALUABLE EVENT [None]
